FAERS Safety Report 18701214 (Version 1)
Quarter: 2021Q1

REPORT INFORMATION
  Report Type: Spontaneous
  Country: US (occurrence: US)
  Receive Date: 20210105
  Receipt Date: 20210105
  Transmission Date: 20210419
  Serious: No
  Sender: FDA-Public Use
  Company Number: None

PATIENT
  Age: 65 Year
  Sex: Female
  Weight: 54 kg

DRUGS (4)
  1. ZINC. [Concomitant]
     Active Substance: ZINC
  2. BAMLANIVIMAB. [Suspect]
     Active Substance: BAMLANIVIMAB
     Indication: COVID-19
     Dosage: ?          OTHER FREQUENCY:ONE INFUSION;?
     Route: 042
     Dates: start: 20201223, end: 20201223
  3. CALCIUM W/ D [Concomitant]
  4. VITAMIN C [Concomitant]
     Active Substance: ASCORBIC ACID

REACTIONS (4)
  - Pruritus [None]
  - Urticaria [None]
  - Scratch [None]
  - Nausea [None]

NARRATIVE: CASE EVENT DATE: 20201224
